FAERS Safety Report 4915010-5 (Version None)
Quarter: 2006Q1

REPORT INFORMATION
  Report Type: 
  Country: None (occurrence: None)
  Receive Date: 20060215
  Receipt Date: 20060215
  Transmission Date: 20060701
  Serious: Yes (Hospitalization)
  Sender: FDA-Public Use
  Company Number: None

PATIENT
  Age: 72 Year
  Sex: Female

DRUGS (1)
  1. PHENYTOIN [Suspect]
     Indication: CONVULSION
     Dosage: 300MG, 600MG   BID, NOON   PO
     Route: 048

REACTIONS (3)
  - ANTICONVULSANT TOXICITY [None]
  - CONFUSIONAL STATE [None]
  - LETHARGY [None]
